FAERS Safety Report 10591179 (Version 2)
Quarter: 2014Q4

REPORT INFORMATION
  Report Type: Spontaneous
  Country: IT (occurrence: IT)
  Receive Date: 20141118
  Receipt Date: 20141130
  Transmission Date: 20150529
  Serious: Yes (Hospitalization)
  Sender: FDA-Public Use
  Company Number: PHHY2014IT149349

PATIENT
  Age: 30 Year
  Sex: Female

DRUGS (7)
  1. DORFLEX [Suspect]
     Active Substance: CAFFEINE\DIPYRONE\ORPHENADRINE
     Indication: PRODUCT USED FOR UNKNOWN INDICATION
     Dosage: 9 PHYSIOLOGIC UNITS, TOT
     Route: 048
     Dates: start: 20141008, end: 20141008
  2. PARACETAMOL [Suspect]
     Active Substance: ACETAMINOPHEN
     Indication: PRODUCT USED FOR UNKNOWN INDICATION
     Dosage: 1500 MG, TOT
     Route: 048
     Dates: start: 20141008, end: 20141008
  3. METRONIDAZOLE. [Suspect]
     Active Substance: METRONIDAZOLE
     Indication: PRODUCT USED FOR UNKNOWN INDICATION
     Dosage: 2000 MG, TOT
     Route: 048
     Dates: start: 20141008, end: 20141008
  4. LORATADINE. [Suspect]
     Active Substance: LORATADINE
     Indication: PRODUCT USED FOR UNKNOWN INDICATION
     Dosage: 70 MG, TOT
     Route: 048
     Dates: start: 20141008, end: 20141008
  5. ACETYLSALICYLIC ACID [Suspect]
     Active Substance: ASPIRIN
     Indication: PRODUCT USED FOR UNKNOWN INDICATION
     Dosage: 1500 MG, TOT
     Route: 048
     Dates: start: 20141008, end: 20141008
  6. DICLOFENAC [Suspect]
     Active Substance: DICLOFENAC
     Indication: PRODUCT USED FOR UNKNOWN INDICATION
     Dosage: 450 MG, TOT
     Route: 048
     Dates: start: 20141008, end: 20141008
  7. LOPERAMIDE [Suspect]
     Active Substance: LOPERAMIDE
     Indication: PRODUCT USED FOR UNKNOWN INDICATION
     Dosage: 4 MG, TOT
     Route: 048
     Dates: start: 20141008, end: 20141008

REACTIONS (2)
  - Intentional overdose [Recovering/Resolving]
  - Abdominal pain upper [Recovering/Resolving]

NARRATIVE: CASE EVENT DATE: 20141008
